FAERS Safety Report 12396725 (Version 1)
Quarter: 2016Q2

REPORT INFORMATION
  Report Type: Spontaneous
  Country: US (occurrence: US)
  Receive Date: 20160524
  Receipt Date: 20160524
  Transmission Date: 20160815
  Serious: Yes (Hospitalization, Other)
  Sender: FDA-Public Use
  Company Number: US-ZYDUS-011140

PATIENT
  Age: 15 Year
  Sex: Female

DRUGS (1)
  1. BUPROPION/BUPROPION HYDROCHLORIDE [Suspect]
     Active Substance: BUPROPION HYDROCHLORIDE
     Indication: PRODUCT USED FOR UNKNOWN INDICATION
     Route: 048

REACTIONS (20)
  - Mydriasis [Unknown]
  - Pupil fixed [Unknown]
  - Sinus tachycardia [Recovered/Resolved]
  - Pulmonary oedema [Unknown]
  - Seizure [Recovered/Resolved]
  - Acute kidney injury [Unknown]
  - Cardiomyopathy acute [Unknown]
  - Pulmonary haemorrhage [Unknown]
  - Creatinine urine abnormal [Recovered/Resolved]
  - Pulseless electrical activity [Unknown]
  - Cardiac output decreased [Recovered/Resolved]
  - Status epilepticus [Recovered/Resolved]
  - Hypoxia [Recovered/Resolved]
  - Cardiac arrest [Recovered/Resolved]
  - Leukocytosis [Unknown]
  - Pneumonia aspiration [Unknown]
  - Urine output decreased [Recovered/Resolved]
  - Overdose [Unknown]
  - Status epilepticus [Unknown]
  - Cardiogenic shock [Recovered/Resolved]
